FAERS Safety Report 9708944 (Version 1)
Quarter: 2013Q4

REPORT INFORMATION
  Report Type: Spontaneous
  Country: CN (occurrence: None)
  Receive Date: 20131122
  Receipt Date: 20131122
  Transmission Date: 20140711
  Serious: Yes (Hospitalization)
  Sender: FDA-Public Use
  Company Number: LORA20130004

PATIENT
  Age: 49 Year
  Sex: Female

DRUGS (6)
  1. LORAZEPAM [Suspect]
     Indication: PRODUCT USED FOR UNKNOWN INDICATION
     Dosage: 2 MG, 1 TABLET NOCTE (AT NIGHT) , ORAL
  2. ZOLPIDEM TARTRATE [Suspect]
     Indication: PRODUCT USED FOR UNKNOWN INDICATION
     Dosage: 50 MG, 50 MG NOCTE (AT NIGHT), ORAL????????
     Route: 048
  3. METOPROLOL (METOPROLOL) (TABLETS) (METOPROLOL) [Concomitant]
  4. CHLORPROMAZINE (CHLORPROMAZINE) (TABLETS) (CHLOROPROMAZINE) [Concomitant]
  5. FLUOXETEINE (FLUOXETINE) (UNKNOWN) (FLUOXETINE) [Concomitant]
  6. GLICLAZIDE MR (GLICLAZIDE) (UNKNOWN) (GLICLAZIDE) [Concomitant]

REACTIONS (4)
  - Stress cardiomyopathy [None]
  - Grand mal convulsion [None]
  - Tremor [None]
  - Drug withdrawal syndrome [None]
